FAERS Safety Report 6960907-8 (Version None)
Quarter: 2010Q3

REPORT INFORMATION
  Report Type: 
  Country: None (occurrence: None)
  Receive Date: 20100901
  Receipt Date: 20100820
  Transmission Date: 20110219
  Serious: Yes (Other)
  Sender: FDA-Public Use
  Company Number: US-PFIZER INC-2010106115

PATIENT
  Sex: Female
  Weight: 71.65 kg

DRUGS (10)
  1. ESTRING [Suspect]
     Indication: ATROPHIC VULVOVAGINITIS
     Dosage: 2 MG, UNK
     Dates: start: 20100201, end: 20100815
  2. ESTRING [Suspect]
     Indication: DYSPAREUNIA
  3. LEVOTHYROXINE [Concomitant]
     Indication: HYPOTHYROIDISM
     Dosage: UNK
  4. RANITIDINE [Concomitant]
     Dosage: UNK
  5. TOPIRAMATE [Concomitant]
     Indication: MIGRAINE
     Dosage: UNK
  6. RELPAX [Concomitant]
     Indication: MIGRAINE
     Dosage: UNK, AS NEEDED
  7. MULTI-VITAMINS [Concomitant]
     Dosage: UNK
  8. CALCIUM [Concomitant]
     Indication: OSTEOPOROSIS PROPHYLAXIS
     Dosage: UNK
  9. VITAMIN D [Concomitant]
     Indication: OSTEOPOROSIS PROPHYLAXIS
     Dosage: UNK
  10. PHENTERMINE [Concomitant]
     Dosage: 18.75 MG, DAILY

REACTIONS (1)
  - VULVOVAGINAL MYCOTIC INFECTION [None]
